FAERS Safety Report 23325447 (Version 2)
Quarter: 2023Q4

REPORT INFORMATION
  Report Type: Spontaneous
  Country: US (occurrence: US)
  Receive Date: 20231221
  Receipt Date: 20231228
  Transmission Date: 20240109
  Serious: No
  Sender: FDA-Public Use
  Company Number: US-SANOFI-01873786

PATIENT
  Age: 58 Year
  Sex: Female

DRUGS (1)
  1. TOUJEO MAX [Suspect]
     Active Substance: INSULIN GLARGINE
     Indication: Type 1 diabetes mellitus
     Dosage: 96 IU, QD; DRUG TREATMENT DURATION:UTR
     Dates: start: 2022

REACTIONS (3)
  - Injection site bruising [Unknown]
  - Vision blurred [Unknown]
  - Device issue [Unknown]
